FAERS Safety Report 18399286 (Version 2)
Quarter: 2020Q4

REPORT INFORMATION
  Report Type: Spontaneous
  Country: UY (occurrence: UY)
  Receive Date: 20201019
  Receipt Date: 20201218
  Transmission Date: 20210114
  Serious: Yes (Death, Hospitalization, Other)
  Sender: FDA-Public Use
  Company Number: UY-SEATTLE GENETICS-2020SGN04633

PATIENT
  Age: 84 Year
  Sex: Male

DRUGS (3)
  1. ADCETRIS [Suspect]
     Active Substance: BRENTUXIMAB VEDOTIN
     Indication: HODGKIN^S DISEASE
     Dosage: 180 MILLIGRAM
     Route: 042
     Dates: start: 20200731
  2. ADCETRIS [Suspect]
     Active Substance: BRENTUXIMAB VEDOTIN
     Dosage: UNK
     Route: 065
  3. ADCETRIS [Suspect]
     Active Substance: BRENTUXIMAB VEDOTIN
     Dosage: 180 MILLIGRAM
     Route: 065
     Dates: start: 202007

REACTIONS (3)
  - Hospitalisation [Unknown]
  - Cerebrovascular accident [Fatal]
  - Lung neoplasm [Unknown]

NARRATIVE: CASE EVENT DATE: 20201001
